FAERS Safety Report 9348735 (Version 1)
Quarter: 2013Q2

REPORT INFORMATION
  Report Type: Spontaneous
  Country: US (occurrence: US)
  Receive Date: 20130614
  Receipt Date: 20130614
  Transmission Date: 20140414
  Serious: No
  Sender: FDA-Public Use
  Company Number: US-GLAXOSMITHKLINE-A1006550A

PATIENT
  Age: 36 Year
  Sex: Female

DRUGS (2)
  1. TREXIMET [Suspect]
     Indication: MIGRAINE
     Dosage: 80MG UNKNOWN
     Route: 048
     Dates: start: 201209
  2. PROPANOLOL [Concomitant]

REACTIONS (7)
  - Pain [Recovered/Resolved]
  - Pain in extremity [Unknown]
  - Pain in jaw [Unknown]
  - Oral pain [Unknown]
  - Dyskinesia [Unknown]
  - Migraine [Unknown]
  - Drug ineffective [Unknown]
